FAERS Safety Report 9255301 (Version 6)
Quarter: 2016Q3

REPORT INFORMATION
  Report Type: Spontaneous
  Country: US (occurrence: US)
  Receive Date: 20130425
  Receipt Date: 20160801
  Transmission Date: 20161109
  Serious: Yes (Hospitalization, Disabling, Other)
  Sender: FDA-Public Use
  Company Number: US-009507513-1304USA010933

PATIENT
  Sex: Male

DRUGS (3)
  1. FINASTERIDE. [Suspect]
     Active Substance: FINASTERIDE
     Indication: ALOPECIA
     Dosage: 5 MG, QD
     Route: 048
     Dates: start: 2009, end: 2012
  2. PROPECIA [Suspect]
     Active Substance: FINASTERIDE
     Dosage: UNK
     Route: 048
     Dates: end: 200808
  3. PROPECIA [Suspect]
     Active Substance: FINASTERIDE
     Indication: ALOPECIA
     Dosage: 1 MG, QD
     Route: 048
     Dates: end: 201201

REACTIONS (37)
  - Cerebrovascular accident [Not Recovered/Not Resolved]
  - Adverse drug reaction [Unknown]
  - Cerebrovascular accident [Unknown]
  - Penile size reduced [Unknown]
  - Headache [Unknown]
  - Testicular pain [Unknown]
  - Semen volume decreased [Unknown]
  - Sexual dysfunction [Unknown]
  - Alcohol abuse [Unknown]
  - Hypercholesterolaemia [Unknown]
  - Fall [Unknown]
  - Hernia repair [Unknown]
  - Major depression [Not Recovered/Not Resolved]
  - Depression [Not Recovered/Not Resolved]
  - Cognitive disorder [Unknown]
  - Anxiety [Not Recovered/Not Resolved]
  - Penis injury [Unknown]
  - Drug administration error [Unknown]
  - Loss of libido [Unknown]
  - Abdominal operation [Unknown]
  - Hand fracture [Unknown]
  - Brain injury [Unknown]
  - Disturbance in attention [Unknown]
  - Hand fracture [Unknown]
  - Hormone level abnormal [Unknown]
  - Testicular disorder [Unknown]
  - Erectile dysfunction [Unknown]
  - Inguinal hernia [Unknown]
  - Insomnia [Unknown]
  - Upper limb fracture [Unknown]
  - Raynaud^s phenomenon [Unknown]
  - Transient ischaemic attack [Unknown]
  - Small intestinal obstruction [Recovered/Resolved]
  - Suicidal ideation [Unknown]
  - Peyronie^s disease [Unknown]
  - Ejaculation disorder [Unknown]
  - Umbilical hernia [Unknown]

NARRATIVE: CASE EVENT DATE: 2000
